FAERS Safety Report 24528269 (Version 1)
Quarter: 2024Q4

REPORT INFORMATION
  Report Type: Spontaneous
  Country: US (occurrence: US)
  Receive Date: 20241021
  Receipt Date: 20241021
  Transmission Date: 20250114
  Serious: Yes (Hospitalization, Other)
  Sender: ADVANZ PHARMA
  Company Number: US-ADVANZ PHARMA-202410008231

PATIENT

DRUGS (1)
  1. PHOTOFRIN [Suspect]
     Active Substance: PORFIMER SODIUM
     Indication: Tracheal neoplasm
     Dosage: UNK UNK, SINGLE (INJECTED OVER 3-5 MIN) (SINGLE DOSE)
     Dates: start: 20240701

REACTIONS (3)
  - Tracheal stenosis [Unknown]
  - Dyspnoea [Unknown]
  - Product use in unapproved indication [Unknown]
